FAERS Safety Report 9047255 (Version 1)
Quarter: 2013Q1

REPORT INFORMATION
  Report Type: Report from Study
  Country: US (occurrence: US)
  Receive Date: 20130131
  Receipt Date: 20130131
  Transmission Date: 20140127
  Serious: No
  Sender: FDA-Public Use
  Company Number: US-ABBOTT-12P-163-0979464-00

PATIENT
  Sex: Female
  Weight: 86.26 kg

DRUGS (5)
  1. HUMIRA [Suspect]
     Indication: RHEUMATOID ARTHRITIS
     Dates: start: 20120509, end: 20120722
  2. BENICAR [Concomitant]
     Indication: HYPERTENSION
  3. TRAMADOL [Concomitant]
     Indication: PAIN
  4. HCTZ [Concomitant]
     Indication: FLUID RETENTION
  5. PREVACID [Concomitant]
     Indication: DYSPEPSIA

REACTIONS (3)
  - Injection site erythema [Recovered/Resolved]
  - Injection site swelling [Not Recovered/Not Resolved]
  - Muscle spasms [Recovered/Resolved]
